FAERS Safety Report 18719156 (Version 1)
Quarter: 2021Q1

REPORT INFORMATION
  Report Type: Spontaneous
  Country: US (occurrence: US)
  Receive Date: 20210108
  Receipt Date: 20210108
  Transmission Date: 20210419
  Serious: Yes (Death)
  Sender: FDA-Public Use
  Company Number: US-ALVOGEN-2021-ALVOGEN-116019

PATIENT
  Age: 23 Year
  Sex: Male

DRUGS (3)
  1. GABAPENTIN. [Suspect]
     Active Substance: GABAPENTIN
     Indication: DRUG ABUSE
     Route: 065
  2. METAMFETAMINE HYDROCHLORIDE [Suspect]
     Active Substance: METHAMPHETAMINE HYDROCHLORIDE
     Indication: DRUG ABUSE
     Route: 065
  3. BUPROPION. [Suspect]
     Active Substance: BUPROPION
     Indication: DRUG ABUSE
     Route: 065

REACTIONS (1)
  - Drug abuse [Fatal]
